FAERS Safety Report 9644780 (Version 1)
Quarter: 2013Q4

REPORT INFORMATION
  Report Type: Spontaneous
  Country: US (occurrence: US)
  Receive Date: 20131025
  Receipt Date: 20131025
  Transmission Date: 20140711
  Serious: No
  Sender: FDA-Public Use
  Company Number: US-PFIZER INC-2013301754

PATIENT
  Age: 64 Year
  Sex: 0

DRUGS (6)
  1. ERYTHROMYCIN [Suspect]
     Dosage: UNK
  2. GEMFIBROZIL [Suspect]
     Dosage: UNK
  3. LOPID [Suspect]
     Dosage: 600 MG, 1X/DAY
     Route: 048
  4. IBUPROFEN [Suspect]
     Dosage: UNK
  5. TAGAMET [Suspect]
     Dosage: UNK
  6. DIOVAN (VALSARTAN) [Suspect]
     Dosage: UNK

REACTIONS (1)
  - Drug hypersensitivity [Unknown]
